FAERS Safety Report 12404811 (Version 1)
Quarter: 2016Q2

REPORT INFORMATION
  Report Type: Report from Study
  Country: CA (occurrence: MX)
  Receive Date: 20160525
  Receipt Date: 20160525
  Transmission Date: 20160815
  Serious: Yes (Other)
  Sender: FDA-Public Use
  Company Number: CA-JNJFOC-20160522160

PATIENT
  Age: 47 Year
  Sex: Female

DRUGS (1)
  1. REMICADE [Suspect]
     Active Substance: INFLIXIMAB
     Indication: CROHN^S DISEASE
     Route: 042
     Dates: start: 20111121

REACTIONS (3)
  - Off label use [Unknown]
  - Product use issue [Unknown]
  - Salmonellosis [Not Recovered/Not Resolved]

NARRATIVE: CASE EVENT DATE: 20111120
